FAERS Safety Report 7265892-X (Version None)
Quarter: 2011Q1

REPORT INFORMATION
  Report Type: 
  Country: None (occurrence: None)
  Receive Date: 20110131
  Receipt Date: 20110126
  Transmission Date: 20110831
  Serious: Yes (Hospitalization)
  Sender: FDA-Public Use
  Company Number: B0694109A

PATIENT
  Sex: Male

DRUGS (8)
  1. SEROQUEL [Concomitant]
     Indication: DEPRESSION
     Route: 048
     Dates: start: 20090101
  2. MIRTAZAPINE [Concomitant]
     Indication: DEPRESSION
     Route: 048
     Dates: start: 20090101
  3. WELLBUTRIN [Suspect]
     Indication: DEPRESSION
     Dosage: 150MG PER DAY
     Route: 048
     Dates: start: 20100501, end: 20110111
  4. CACIT [Concomitant]
     Indication: OSTEOPOROSIS
     Route: 048
     Dates: start: 20080101
  5. MELOXICAM [Concomitant]
     Indication: PAIN
     Route: 048
     Dates: start: 20080101
  6. SIMVASTATIN [Concomitant]
  7. PANADOL [Concomitant]
     Indication: PAIN
     Dosage: 1000MG PER DAY
     Route: 048
     Dates: start: 20080101
  8. DUROGESIC PATCH [Concomitant]
     Indication: PAIN
     Dates: start: 20090101

REACTIONS (2)
  - HEMIPARESIS [None]
  - EPILEPSY [None]
